FAERS Safety Report 17229807 (Version 2)
Quarter: 2020Q1

REPORT INFORMATION
  Report Type: Not Available
  Country: US (occurrence: US)
  Receive Date: 20200103
  Receipt Date: 20200221
  Transmission Date: 20200409
  Serious: No
  Sender: FDA-Public Use
  Company Number: US-NEUROCRINE BIOSCIENCES INC.-2019NBI04004

PATIENT
  Age: 23 Year
  Sex: Male

DRUGS (10)
  1. PROZAC [Concomitant]
     Active Substance: FLUOXETINE HYDROCHLORIDE
  2. N-ACETYL CYSTEINE [Concomitant]
     Active Substance: ACETYLCYSTEINE
  3. INGREZZA [Suspect]
     Active Substance: VALBENAZINE
     Route: 048
     Dates: start: 20191008, end: 20191122
  4. LAMOTRIGINE. [Concomitant]
     Active Substance: LAMOTRIGINE
  5. ZYPREXA [Concomitant]
     Active Substance: OLANZAPINE
  6. ALLEGRA [Concomitant]
     Active Substance: FEXOFENADINE HYDROCHLORIDE
  7. BETAHISTINE [Concomitant]
     Active Substance: BETAHISTINE
  8. LIBRIUM [Concomitant]
     Active Substance: CHLORDIAZEPOXIDE HYDROCHLORIDE
  9. INGREZZA [Suspect]
     Active Substance: VALBENAZINE
     Indication: TARDIVE DYSKINESIA
     Route: 048
     Dates: start: 20190930, end: 20191007
  10. GUANFACINE. [Concomitant]
     Active Substance: GUANFACINE

REACTIONS (1)
  - Tic [Recovered/Resolved]

NARRATIVE: CASE EVENT DATE: 20191121
